FAERS Safety Report 15749451 (Version 27)
Quarter: 2020Q4

REPORT INFORMATION
  Report Type: Spontaneous
  Country: CA (occurrence: CA)
  Receive Date: 20181221
  Receipt Date: 20201218
  Transmission Date: 20210113
  Serious: Yes (Other)
  Sender: FDA-Public Use
  Company Number: CA-CELLTRION INC.-2016CA014412

PATIENT

DRUGS (87)
  1. LORATADINE. [Concomitant]
     Active Substance: LORATADINE
     Indication: PREMEDICATION
     Dosage: 10 MG, SINGLE
     Route: 048
     Dates: start: 20180322, end: 20180322
  2. ACETAMINOPHEN. [Concomitant]
     Active Substance: ACETAMINOPHEN
     Dosage: 1000 MG
     Dates: start: 20200810, end: 20200810
  3. REACTINE [CETIRIZINE HYDROCHLORIDE] [Concomitant]
     Active Substance: CETIRIZINE HYDROCHLORIDE
     Indication: PREMEDICATION
     Dosage: 10 MG, UNK
     Route: 048
  4. SOLU-MEDROL [Concomitant]
     Active Substance: METHYLPREDNISOLONE SODIUM SUCCINATE
     Dosage: 100 MG
     Dates: start: 20201111, end: 20201111
  5. INFLECTRA [Suspect]
     Active Substance: INFLIXIMAB-DYYB
     Indication: PSORIASIS
     Dosage: 1000 MG, EVERY 4 WEEKS FOR 12MONTHS
     Route: 042
  6. INFLECTRA [Suspect]
     Active Substance: INFLIXIMAB-DYYB
     Dosage: 1050 MG, EVERY 4 WEEKS FOR 12 MONTHS
     Route: 042
  7. INFLECTRA [Suspect]
     Active Substance: INFLIXIMAB-DYYB
     Dosage: UNK
     Route: 042
     Dates: start: 20180221
  8. INFLECTRA [Suspect]
     Active Substance: INFLIXIMAB-DYYB
     Dosage: 1050 MG, EVERY 4 WEEKS
     Route: 042
     Dates: start: 20180517
  9. INFLECTRA [Suspect]
     Active Substance: INFLIXIMAB-DYYB
     Dosage: 1050 MG, EVERY 4 WEEKS
     Route: 042
     Dates: start: 20180716
  10. INFLECTRA [Suspect]
     Active Substance: INFLIXIMAB-DYYB
     Dosage: 1050 MG, EVERY 4 WEEKS
     Route: 042
     Dates: start: 20190326
  11. INFLECTRA [Suspect]
     Active Substance: INFLIXIMAB-DYYB
     Dosage: 1050 MG, EVERY 4 WEEKS
     Route: 042
     Dates: start: 20190524
  12. INFLECTRA [Suspect]
     Active Substance: INFLIXIMAB-DYYB
     Dosage: 920 MG, EVERY 4 WEEKS
     Route: 042
     Dates: start: 20191121
  13. CORTISONE [Concomitant]
     Active Substance: CORTISONE
     Dosage: UNK
     Route: 065
  14. PREDNISONE. [Concomitant]
     Active Substance: PREDNISONE
     Dosage: 5 MG CAPS 1 PILL ONCE A DAY AT BREAKFAST FOR 1 MONTH
  15. SUMATRIPTAN. [Concomitant]
     Active Substance: SUMATRIPTAN
     Indication: MIGRAINE
     Dosage: 1 DF, UNK
     Dates: start: 20171229
  16. LORATADINE. [Concomitant]
     Active Substance: LORATADINE
     Dosage: UNK
     Route: 048
     Dates: start: 20181207, end: 20181207
  17. LORATADINE. [Concomitant]
     Active Substance: LORATADINE
     Dosage: 10 MG
     Route: 048
     Dates: start: 20190107
  18. ACETAMINOPHEN. [Concomitant]
     Active Substance: ACETAMINOPHEN
     Dosage: 1000 MG
     Dates: start: 20201111, end: 20201111
  19. ACETAMINOPHEN. [Concomitant]
     Active Substance: ACETAMINOPHEN
     Dosage: 1000 MG
     Dates: start: 20201209, end: 20201209
  20. INFLECTRA [Suspect]
     Active Substance: INFLIXIMAB-DYYB
     Dosage: 920 MG, EVERY 4 WEEKS
     Route: 042
     Dates: start: 20191220
  21. INFLECTRA [Suspect]
     Active Substance: INFLIXIMAB-DYYB
     Dosage: 850 MG
     Route: 042
     Dates: start: 20201014
  22. INFLECTRA [Suspect]
     Active Substance: INFLIXIMAB-DYYB
     Dosage: 850 MG
     Route: 042
     Dates: start: 20201111
  23. INFLECTRA [Suspect]
     Active Substance: INFLIXIMAB-DYYB
     Dosage: 10 MG/KG EVERY 4 WEEKS
     Route: 042
     Dates: start: 20201209
  24. LEFLUNOMIDE. [Concomitant]
     Active Substance: LEFLUNOMIDE
     Dosage: UNK
  25. ELTROXIN [Concomitant]
     Active Substance: LEVOTHYROXINE
     Dosage: 1 DF, 1X/DAY (AM AND PM) WITH 0.15 MG
     Dates: start: 20160807
  26. ELTROXIN [Concomitant]
     Active Substance: LEVOTHYROXINE
     Dosage: 200 MG, DAILY(FOR LIFE)
     Route: 048
  27. LORATADINE. [Concomitant]
     Active Substance: LORATADINE
     Dosage: 10 MG
     Dates: start: 20201111, end: 20201111
  28. INFLECTRA [Suspect]
     Active Substance: INFLIXIMAB-DYYB
     Dosage: UNK
     Route: 042
     Dates: start: 20180124
  29. INFLECTRA [Suspect]
     Active Substance: INFLIXIMAB-DYYB
     Dosage: 1050 MG, EVERY 4 WEEKS
     Route: 042
     Dates: start: 20180322
  30. INFLECTRA [Suspect]
     Active Substance: INFLIXIMAB-DYYB
     Dosage: 10 MG/KG, MONTHLY (EVERY 4 WEEKS)
     Route: 042
     Dates: start: 20200506
  31. ELTROXIN [Concomitant]
     Active Substance: LEVOTHYROXINE
     Indication: HYPOTHYROIDISM
     Dosage: 1 DF, 1X/DAY (AM AND PM) WITH 0.05 MG
     Dates: start: 20160807
  32. PREDNISONE. [Concomitant]
     Active Substance: PREDNISONE
     Indication: ARTHRITIS
     Dosage: 15 MG, DAILY(LONG TERM)
     Route: 048
  33. PREDNISONE. [Concomitant]
     Active Substance: PREDNISONE
     Dosage: 5 MG CAPS 1 PILL AT BREAKFAST EVERY 2 DAYS FOR 1 MONTH
  34. OTEZLA [Concomitant]
     Active Substance: APREMILAST
     Indication: IMMUNOMODULATORY THERAPY
     Dosage: UNK
     Dates: start: 20180322
  35. LORATADINE. [Concomitant]
     Active Substance: LORATADINE
     Indication: PRURITUS
     Dosage: 10 MG, UNK
     Route: 048
     Dates: start: 20180615, end: 20180615
  36. VITAMIN D [Concomitant]
     Active Substance: VITAMIN D NOS
     Dosage: 10000 IU, WEEKLY
     Dates: start: 20171123
  37. ACETAMINOPHEN. [Concomitant]
     Active Substance: ACETAMINOPHEN
     Dosage: 1000 MG, UNK
     Route: 048
     Dates: start: 20190423
  38. SOLU-MEDROL [Concomitant]
     Active Substance: METHYLPREDNISOLONE SODIUM SUCCINATE
     Dosage: 40 MG,
     Route: 042
     Dates: start: 20201209, end: 20201209
  39. INFLECTRA [Suspect]
     Active Substance: INFLIXIMAB-DYYB
     Dosage: 1050 MG, EVERY 4 WEEKS FOR 12 MONTHS
     Route: 042
  40. INFLECTRA [Suspect]
     Active Substance: INFLIXIMAB-DYYB
     Dosage: 1050 MG, EVERY 4 WEEKS
     Route: 042
     Dates: start: 20180420
  41. INFLECTRA [Suspect]
     Active Substance: INFLIXIMAB-DYYB
     Dosage: UNK
     Route: 042
     Dates: start: 20190430
  42. INFLECTRA [Suspect]
     Active Substance: INFLIXIMAB-DYYB
     Dosage: 1050 MG, EVERY 4 WEEKS
     Route: 042
     Dates: start: 20190618
  43. JAMP VITAMIN D [Concomitant]
     Active Substance: CHOLECALCIFEROL
     Dosage: 1 DF, WEEKLY
     Dates: start: 20171123
  44. MIRENA [Concomitant]
     Active Substance: LEVONORGESTREL
     Dosage: UNK
     Route: 015
     Dates: start: 20180302
  45. APC-LORATADINE [Concomitant]
     Indication: HYPERSENSITIVITY
     Dosage: 1 DF, 1X/DAY
     Dates: start: 20170509
  46. LORATADINE. [Concomitant]
     Active Substance: LORATADINE
     Dosage: 10 MG
     Dates: start: 20201209, end: 20201209
  47. ELTROXIN LF [Concomitant]
     Dosage: 0.15 MG AS CAPSULE ONCE A DAY IN THE MORNING (WITH A CAPSULE OF 0.05MG = 0.200MG)
     Dates: start: 20160807
  48. ELTROXIN LF [Concomitant]
     Dosage: 0.05 MG AS CAPSULE ONCE A DAY IN THE MORNING  (WITH A CAPSULE OF 0.15MG = 0.200MG)
     Dates: start: 20160807
  49. INFLECTRA [Suspect]
     Active Substance: INFLIXIMAB-DYYB
     Dosage: 1050 MG, EVERY 4 WEEKS
     Route: 042
     Dates: start: 20180615
  50. INFLECTRA [Suspect]
     Active Substance: INFLIXIMAB-DYYB
     Dosage: 10 MG/KG, MONTHLY (EVERY 4 WEEKS)
     Route: 042
     Dates: start: 20200310
  51. CORTISONE [Concomitant]
     Active Substance: CORTISONE
     Dosage: UNK
     Route: 065
  52. OTEZLA [Concomitant]
     Active Substance: APREMILAST
     Dosage: 2X DAY MORNING AND NIGHT REGULARLY
     Dates: start: 20180312
  53. DEXILANT [Concomitant]
     Active Substance: DEXLANSOPRAZOLE
     Indication: ABDOMINAL DISCOMFORT
     Dosage: 1 DF, 1X/DAY (30 MINUTES BEFORE BREAKFAST)
     Dates: start: 20171123
  54. LORATADINE. [Concomitant]
     Active Substance: LORATADINE
     Dosage: 10 MG, UNK
     Route: 048
     Dates: start: 20190524
  55. LORATADINE. [Concomitant]
     Active Substance: LORATADINE
     Dosage: 10 MG, UNK
     Route: 048
     Dates: start: 20190618
  56. VITAMIN K [Concomitant]
     Active Substance: PHYTONADIONE
     Dosage: 2 CAPSULES 2X DAY AT BREAKFAST AND SUPPER FOR 10 DAYS
     Dates: start: 20170112
  57. SOLU-MEDROL [Concomitant]
     Active Substance: METHYLPREDNISOLONE SODIUM SUCCINATE
     Indication: PREMEDICATION
     Dosage: 40 MG, UNK
     Route: 042
     Dates: start: 20190524
  58. INFLECTRA [Suspect]
     Active Substance: INFLIXIMAB-DYYB
     Indication: PSORIATIC ARTHROPATHY
     Dosage: 1000 MG, WEEKS 0, 2 THEN EVERY 6 WEEKS
     Route: 042
     Dates: start: 20160906, end: 20161130
  59. INFLECTRA [Suspect]
     Active Substance: INFLIXIMAB-DYYB
     Dosage: 1050 MG, EVERY 4 WEEKS FOR 12 MONTHS
     Route: 042
     Dates: start: 20161228, end: 20191025
  60. INFLECTRA [Suspect]
     Active Substance: INFLIXIMAB-DYYB
     Dosage: 1050 MG, EVERY 4 WEEKS FOR 12 MONTHS
     Route: 042
     Dates: start: 20180120
  61. INFLECTRA [Suspect]
     Active Substance: INFLIXIMAB-DYYB
     Dosage: 1050 MG, EVERY 4 WEEKS
     Route: 042
     Dates: start: 20181207
  62. INFLECTRA [Suspect]
     Active Substance: INFLIXIMAB-DYYB
     Dosage: UNK
     Route: 042
     Dates: start: 20190423
  63. INFLECTRA [Suspect]
     Active Substance: INFLIXIMAB-DYYB
     Dosage: 1050 MG
     Route: 042
     Dates: start: 20190913
  64. INFLECTRA [Suspect]
     Active Substance: INFLIXIMAB-DYYB
     Dosage: 10 MG/KG, EVERY 4 WEEKS
     Route: 042
     Dates: start: 20191121
  65. INFLECTRA [Suspect]
     Active Substance: INFLIXIMAB-DYYB
     Dosage: 10 MG/KG, MONTHLY (EVERY 4 WEEKS)
     Route: 042
     Dates: start: 20200128
  66. AMOXYL [Concomitant]
     Active Substance: AMOXICILLIN
     Indication: SINUSITIS
     Dosage: 300 MG, 3X/DAY
     Route: 048
     Dates: start: 2007
  67. OTEZLA [Concomitant]
     Active Substance: APREMILAST
     Dosage: (10MG-20MG-30MG) CAPSULE ; 1 CAPSULE IN THE MORNING FOR 1 DAY, 1 CAPSULE 2X DAY MORNING AND NIGHT FO
     Dates: start: 20180221, end: 201805
  68. LORATADINE. [Concomitant]
     Active Substance: LORATADINE
     Dosage: 10 MG, UNK
     Route: 048
     Dates: start: 20190423
  69. ACETAMINOPHEN. [Concomitant]
     Active Substance: ACETAMINOPHEN
     Dosage: 1000 MG
     Route: 048
     Dates: start: 20190107
  70. ACETAMINOPHEN. [Concomitant]
     Active Substance: ACETAMINOPHEN
     Dosage: 1000 MG, UNK
     Route: 048
     Dates: start: 20190524
  71. ACETAMINOPHEN. [Concomitant]
     Active Substance: ACETAMINOPHEN
     Dosage: 1000 MG, UNK
     Route: 048
     Dates: start: 20190618
  72. APO-PREDNISONE [Concomitant]
     Active Substance: PREDNISONE
     Dosage: UNK
  73. SOLU-MEDROL [Concomitant]
     Active Substance: METHYLPREDNISOLONE SODIUM SUCCINATE
     Dosage: 100 MG
     Dates: start: 20200810, end: 20200810
  74. INFLECTRA [Suspect]
     Active Substance: INFLIXIMAB-DYYB
     Indication: ARTHRALGIA
     Dosage: 1000 MG, EVERY 4 WEEKS FOR 12MONTHS
     Route: 042
  75. INFLECTRA [Suspect]
     Active Substance: INFLIXIMAB-DYYB
     Dosage: 1050 MG, EVERY 4 WEEKS
     Route: 042
     Dates: start: 20180810
  76. INFLECTRA [Suspect]
     Active Substance: INFLIXIMAB-DYYB
     Dosage: 1050 MG, EVERY 4 WEEKS
     Route: 042
     Dates: start: 20180910
  77. INFLECTRA [Suspect]
     Active Substance: INFLIXIMAB-DYYB
     Dosage: 1050 MG, EVERY 6 WEEKS
     Route: 042
     Dates: start: 20191025
  78. INFLECTRA [Suspect]
     Active Substance: INFLIXIMAB-DYYB
     Dosage: 920 MG, EVERY 4 WEEKS
     Route: 042
     Dates: start: 20191219
  79. INFLECTRA [Suspect]
     Active Substance: INFLIXIMAB-DYYB
     Dosage: 10 MG/KG EVERY 4 WEEKS
     Route: 042
     Dates: start: 20200810
  80. IMURAN [Concomitant]
     Active Substance: AZATHIOPRINE
     Dosage: UNK
     Route: 065
  81. CORTISONE [Concomitant]
     Active Substance: CORTISONE
     Dosage: 20 MG, DAILY(FOR 28 DAYS)
     Route: 065
     Dates: start: 20180928, end: 2018
  82. PREDNISONE. [Concomitant]
     Active Substance: PREDNISONE
     Dosage: 3 CAPSULES 1X DAY AT BREAKFAST FOR 7 DAYS AND 2 CAPSULES 2X DAY AT BREAKFAST FOR 7 DAYS AND 1 CAPSUL
     Dates: start: 20180215
  83. LORATADINE. [Concomitant]
     Active Substance: LORATADINE
     Dosage: 10 MG
     Dates: start: 20200810, end: 20200810
  84. ACETAMINOPHEN. [Concomitant]
     Active Substance: ACETAMINOPHEN
     Indication: PREMEDICATION
     Dosage: 1000 MG, UNK
     Route: 048
     Dates: start: 20180615, end: 20180615
  85. INFLECTRA [Suspect]
     Active Substance: INFLIXIMAB-DYYB
     Dosage: 1050 MG, EVERY 4 WEEKS
     Route: 042
     Dates: start: 20190107
  86. INFLECTRA [Suspect]
     Active Substance: INFLIXIMAB-DYYB
     Dosage: 1050 MG, EVERY 4 WEEKS
     Route: 042
     Dates: start: 20190218
  87. JAMP CALCIUM [Concomitant]
     Dosage: 1 DF, 1X/DAY (AT LUNCH AND SUPPER)
     Dates: start: 20171123

REACTIONS (38)
  - Photosensitivity reaction [Not Recovered/Not Resolved]
  - Blood pressure fluctuation [Unknown]
  - Tooth abscess [Unknown]
  - Throat irritation [Recovered/Resolved]
  - Pain in extremity [Unknown]
  - Pyrexia [Unknown]
  - Musculoskeletal stiffness [Unknown]
  - Productive cough [Unknown]
  - Pruritus [Unknown]
  - Inappropriate schedule of product administration [Unknown]
  - Syncope [Recovered/Resolved]
  - Condition aggravated [Unknown]
  - Cough [Not Recovered/Not Resolved]
  - Acne [Not Recovered/Not Resolved]
  - Oropharyngeal pain [Unknown]
  - Nasal congestion [Unknown]
  - Sinus pain [Unknown]
  - Body temperature fluctuation [Unknown]
  - Sinusitis [Unknown]
  - Dizziness [Recovered/Resolved]
  - Arthralgia [Unknown]
  - Fatigue [Not Recovered/Not Resolved]
  - Erythema [Recovering/Resolving]
  - Oedema peripheral [Recovering/Resolving]
  - Sunburn [Unknown]
  - Bronchitis [Unknown]
  - Rash [Unknown]
  - Infusion site pain [Recovered/Resolved]
  - Pain in jaw [Unknown]
  - Hot flush [Not Recovered/Not Resolved]
  - Blood pressure increased [Recovered/Resolved]
  - Rhinorrhoea [Unknown]
  - Nasopharyngitis [Recovered/Resolved]
  - Weight decreased [Unknown]
  - Off label use [Unknown]
  - Intentional product use issue [Unknown]
  - Product use issue [Unknown]
  - Therapeutic response shortened [Unknown]

NARRATIVE: CASE EVENT DATE: 2016
